FAERS Safety Report 8332057-X (Version None)
Quarter: 2012Q2

REPORT INFORMATION
  Report Type: 
  Country: None (occurrence: None)
  Receive Date: 20120502
  Receipt Date: 20120417
  Transmission Date: 20120825
  Serious: Yes (Hospitalization, Other)
  Sender: FDA-Public Use
  Company Number: US-BAXTER-2012BAX000963

PATIENT
  Sex: Female

DRUGS (3)
  1. LANTUS [Concomitant]
  2. DIANEAL PD-2 W/ DEXTROSE 1.5% [Suspect]
     Route: 033
  3. DIANEAL PD-2 W/ DEXTROSE 1.5% [Suspect]
     Indication: PERITONEAL DIALYSIS
     Route: 033

REACTIONS (7)
  - WOUND INFECTION [None]
  - PAIN [None]
  - DIARRHOEA [None]
  - ANGIOPATHY [None]
  - WOUND [None]
  - HYPOTENSION [None]
  - INFECTION [None]
